FAERS Safety Report 5808175-4 (Version None)
Quarter: 2008Q3

REPORT INFORMATION
  Report Type: 
  Country: None (occurrence: None)
  Receive Date: 20080709
  Receipt Date: 20080701
  Transmission Date: 20090109
  Serious: Yes (Other)
  Sender: FDA-Public Use
  Company Number: 163-20785-08050693

PATIENT
  Age: 61 Year
  Sex: Female

DRUGS (4)
  1. THALOMID [Suspect]
     Indication: MULTIPLE MYELOMA
     Dosage: 50 MG, 1 IN 1 D, ORAL; 200 MG, 1 IN 1 D, ORAL
     Route: 048
     Dates: start: 20060822, end: 20060801
  2. THALOMID [Suspect]
     Indication: MULTIPLE MYELOMA
     Dosage: 50 MG, 1 IN 1 D, ORAL; 200 MG, 1 IN 1 D, ORAL
     Route: 048
     Dates: start: 20060927, end: 20080401
  3. ERYTHROPOIETIN/DARBEPOETIN (EPOTEIN ALFA) [Concomitant]
  4. NEUPOGEN [Concomitant]

REACTIONS (2)
  - BONE NEOPLASM MALIGNANT [None]
  - RECURRENT CANCER [None]
